FAERS Safety Report 19269921 (Version 2)
Quarter: 2022Q2

REPORT INFORMATION
  Report Type: Report from Study
  Country: CA (occurrence: CA)
  Receive Date: 20210518
  Receipt Date: 20220426
  Transmission Date: 20220721
  Serious: Yes (Other)
  Sender: FDA-Public Use
  Company Number: CA-TAKEDA-2020TUS024349

PATIENT
  Age: 30 Year
  Sex: Female

DRUGS (4)
  1. VEDOLIZUMAB [Suspect]
     Active Substance: VEDOLIZUMAB
     Indication: Colitis ulcerative
     Dosage: 300 MILLIGRAM
     Route: 042
     Dates: start: 20200516
  2. VEDOLIZUMAB [Suspect]
     Active Substance: VEDOLIZUMAB
     Dosage: 300 MILLIGRAM, Q4WEEKS
     Route: 042
     Dates: start: 20200625
  3. BUDESONIDE [Concomitant]
     Active Substance: BUDESONIDE
     Dosage: 9 MILLIGRAM, QD
     Dates: start: 20200323
  4. IMURAN [Concomitant]
     Active Substance: AZATHIOPRINE
     Dosage: 125 MILLIGRAM, QD
     Dates: start: 20161117

REACTIONS (7)
  - Colitis ulcerative [Not Recovered/Not Resolved]
  - Malaise [Unknown]
  - Abdominal pain [Unknown]
  - Iron deficiency anaemia [Unknown]
  - Asthenia [Unknown]
  - Headache [Unknown]
  - Off label use [Unknown]

NARRATIVE: CASE EVENT DATE: 20200625
